FAERS Safety Report 5106994-3 (Version None)
Quarter: 2006Q3

REPORT INFORMATION
  Report Type: 
  Country: None (occurrence: None)
  Receive Date: 20060913
  Receipt Date: 20060828
  Transmission Date: 20061208
  Serious: Yes (Other)
  Sender: FDA-Public Use
  Company Number: USA040361071

PATIENT
  Age: 51 Year
  Sex: Female
  Weight: 53.1 kg

DRUGS (2)
  1. HUMATROPE [Suspect]
     Dates: start: 20030301, end: 20041201
  2. HUMATROPEN [Concomitant]

REACTIONS (9)
  - ABDOMINAL DISTENSION [None]
  - BACK DISORDER [None]
  - BACK PAIN [None]
  - CIRCUMSTANCE OR INFORMATION CAPABLE OF LEADING TO MEDICATION ERROR [None]
  - NO THERAPEUTIC RESPONSE [None]
  - POOR QUALITY DRUG ADMINISTERED [None]
  - THYROID DISORDER [None]
  - URINARY RETENTION [None]
  - WEIGHT INCREASED [None]
